FAERS Safety Report 10286080 (Version 1)
Quarter: 2014Q3

REPORT INFORMATION
  Report Type: Spontaneous
  Country: US (occurrence: None)
  Receive Date: 20140707
  Receipt Date: 20140707
  Transmission Date: 20150326
  Serious: Yes (Death, Life-Threatening, Hospitalization)
  Sender: FDA-Public Use
  Company Number: None

PATIENT
  Age: 62 Year
  Sex: Male
  Weight: 86.3 kg

DRUGS (16)
  1. VIT. C [Concomitant]
  2. MAG-OX [Concomitant]
  3. LOSARTAN [Concomitant]
     Active Substance: LOSARTAN
  4. PRADAXA [Suspect]
     Active Substance: DABIGATRAN ETEXILATE MESYLATE
     Indication: ANTICOAGULANT THERAPY
     Route: 048
     Dates: start: 20140622, end: 20140702
  5. PRADAXA [Suspect]
     Active Substance: DABIGATRAN ETEXILATE MESYLATE
     Indication: ATRIAL FIBRILLATION
     Route: 048
     Dates: start: 20140622, end: 20140702
  6. BUPROPION [Concomitant]
     Active Substance: BUPROPION
  7. ALLEGRA [Concomitant]
     Active Substance: FEXOFENADINE HYDROCHLORIDE
  8. LOVASTATIN. [Concomitant]
     Active Substance: LOVASTATIN
  9. ASPIRIN. [Concomitant]
     Active Substance: ASPIRIN
  10. VIAGRA [Concomitant]
     Active Substance: SILDENAFIL CITRATE
  11. XANAX [Concomitant]
     Active Substance: ALPRAZOLAM
  12. MULTI-VITAMIN [Concomitant]
     Active Substance: .ALPHA.-TOCOPHEROL ACETATE, DL-\ASCORBIC ACID\CYANOCOBALAMIN\FLUORIDE ION\FOLIC ACID\NIACIN\PYRIDOXINE\RIBOFLAVIN\THIAMINE\VITAMIN A\VITAMIN D
  13. CALCIUM [Concomitant]
     Active Substance: CALCIUM
  14. METOPROLOL [Concomitant]
     Active Substance: METOPROLOL
  15. IBUPROFEN. [Concomitant]
     Active Substance: IBUPROFEN
  16. FLONASE [Concomitant]
     Active Substance: FLUTICASONE PROPIONATE

REACTIONS (4)
  - Cardiac death [None]
  - Cerebral haemorrhage [None]
  - Brain death [None]
  - Respiratory distress [None]

NARRATIVE: CASE EVENT DATE: 20140702
